FAERS Safety Report 11195833 (Version 1)
Quarter: 2015Q2

REPORT INFORMATION
  Report Type: Spontaneous
  Country: US (occurrence: None)
  Receive Date: 20150615
  Receipt Date: 20150615
  Transmission Date: 20150821
  Serious: No
  Sender: FDA-Public Use
  Company Number: None

PATIENT
  Age: 8 Year
  Sex: Male
  Weight: 20.87 kg

DRUGS (2)
  1. ZYRTEC [Concomitant]
     Active Substance: CETIRIZINE HYDROCHLORIDE
  2. MONTELUKAST [Suspect]
     Active Substance: MONTELUKAST SODIUM
     Indication: MULTIPLE ALLERGIES
     Route: 048
     Dates: start: 20150316, end: 20150614

REACTIONS (7)
  - Crying [None]
  - Discomfort [None]
  - Emotional disorder [None]
  - Headache [None]
  - Fatigue [None]
  - Depressed mood [None]
  - Dizziness [None]

NARRATIVE: CASE EVENT DATE: 20150614
